FAERS Safety Report 13922315 (Version 5)
Quarter: 2017Q4

REPORT INFORMATION
  Report Type: Report from Study
  Country: ES (occurrence: ES)
  Receive Date: 20170830
  Receipt Date: 20171206
  Transmission Date: 20180320
  Serious: Yes (Hospitalization)
  Sender: FDA-Public Use
  Company Number: PHHO2017ES012208

PATIENT
  Age: 51 Year
  Sex: Male

DRUGS (7)
  1. OMEPRAZOLE. [Concomitant]
     Active Substance: OMEPRAZOLE
     Indication: PRODUCT USED FOR UNKNOWN INDICATION
     Dosage: 20 MG, QD
     Route: 065
  2. PDR001 [Suspect]
     Active Substance: INVESTIGATIONAL PRODUCT
     Indication: LUNG ADENOCARCINOMA STAGE IV
  3. NAPROXENO [Suspect]
     Active Substance: NAPROXEN
     Indication: BONE PAIN
     Dosage: 1 TABLET OCCASIONAL
     Route: 065
     Dates: start: 201610
  4. NATECAL D [Concomitant]
     Active Substance: CALCIUM CARBONATE\CHOLECALCIFEROL
     Indication: PRODUCT USED FOR UNKNOWN INDICATION
     Dosage: QD
     Route: 065
  5. PDR001 [Suspect]
     Active Substance: INVESTIGATIONAL PRODUCT
     Indication: NEOPLASM MALIGNANT
     Dosage: 300 MG, UNK (Q21D)
     Route: 042
     Dates: start: 20170213, end: 20170417
  6. TAMSULOSINE [Concomitant]
     Active Substance: TAMSULOSIN HYDROCHLORIDE
     Indication: PRODUCT USED FOR UNKNOWN INDICATION
     Dosage: 0.4 MG, QD
     Route: 065
  7. DOCETAXEL. [Suspect]
     Active Substance: DOCETAXEL
     Indication: CHEMOTHERAPY
     Dosage: 75 MG/M2, UNK
     Route: 065
     Dates: start: 20170417, end: 20170717

REACTIONS (1)
  - Acute kidney injury [Recovered/Resolved]

NARRATIVE: CASE EVENT DATE: 20170807
